FAERS Safety Report 5243258-1 (Version None)
Quarter: 2007Q1

REPORT INFORMATION
  Report Type: 
  Country: None (occurrence: None)
  Receive Date: 20070221
  Receipt Date: 20070209
  Transmission Date: 20070707
  Serious: Yes (Other)
  Sender: FDA-Public Use
  Company Number: CH-PFIZER INC-2007010863

PATIENT
  Age: 15 Year
  Sex: Female
  Weight: 47 kg

DRUGS (11)
  1. VFEND [Suspect]
     Route: 042
  2. CANCIDAS [Suspect]
     Route: 042
  3. NOPIL [Concomitant]
     Route: 048
  4. MERCAPTOPURINE [Concomitant]
     Route: 042
  5. METHOTREXAT [Concomitant]
     Route: 042
  6. INDOCID [Concomitant]
     Route: 048
  7. CLEXANE [Concomitant]
     Dosage: DAILY DOSE:40MG
     Route: 058
  8. ANTRA [Concomitant]
     Dosage: DAILY DOSE:40MG
  9. MEROPENEM [Concomitant]
  10. TEICOPLANIN [Concomitant]
  11. AMPHOTERICIN B [Concomitant]

REACTIONS (3)
  - ARTHRITIS [None]
  - EXTRASKELETAL OSSIFICATION [None]
  - POLYSEROSITIS [None]
